FAERS Safety Report 6102625-4 (Version None)
Quarter: 2009Q1

REPORT INFORMATION
  Report Type: 
  Country: None (occurrence: None)
  Receive Date: 20090304
  Receipt Date: 20081021
  Transmission Date: 20090719
  Serious: No
  Sender: FDA-Public Use
  Company Number: A0752808A

PATIENT
  Sex: Female

DRUGS (2)
  1. REQUIP [Suspect]
     Indication: PARKINSON'S DISEASE
     Route: 048
     Dates: start: 20000101, end: 20071001
  2. UNKNOWN [Concomitant]

REACTIONS (1)
  - PATHOLOGICAL GAMBLING [None]
